FAERS Safety Report 9731933 (Version 1)
Quarter: 2013Q4

REPORT INFORMATION
  Report Type: Spontaneous
  Country: US (occurrence: None)
  Receive Date: 20131204
  Receipt Date: 20131204
  Transmission Date: 20140711
  Serious: Yes (Life-Threatening, Hospitalization)
  Sender: FDA-Public Use
  Company Number: None

PATIENT
  Age: 74 Year
  Sex: Female
  Weight: 41.73 kg

DRUGS (6)
  1. ZYVOX [Suspect]
     Indication: CELLULITIS
     Dosage: 2 PILLS 1 TABLETS AM AND PM BY MOUTH
     Route: 048
     Dates: start: 20130830, end: 20130905
  2. LEVOTHYROXINE [Concomitant]
  3. LISINOPRIL [Concomitant]
  4. ALPRAZOLAM [Concomitant]
  5. FOLIC ACID [Concomitant]
  6. VIACTIVE(CALCIUM +VITAMIN D+VTAMIN K) [Concomitant]

REACTIONS (8)
  - Diarrhoea [None]
  - Overdose [None]
  - Anaemia vitamin B12 deficiency [None]
  - Medication error [None]
  - Urinary incontinence [None]
  - Unevaluable event [None]
  - Musculoskeletal disorder [None]
  - Hypophagia [None]
